FAERS Safety Report 15697899 (Version 1)
Quarter: 2018Q4

REPORT INFORMATION
  Report Type: Spontaneous
  Country: SK (occurrence: SK)
  Receive Date: 20181207
  Receipt Date: 20181207
  Transmission Date: 20190205
  Serious: Yes (Hospitalization)
  Sender: FDA-Public Use
  Company Number: SK-TEVA-2018-SK-982975

PATIENT
  Age: 24 Year
  Sex: Female
  Weight: 90 kg

DRUGS (5)
  1. SINUPRET [Suspect]
     Active Substance: HERBALS
     Indication: UPPER RESPIRATORY TRACT INFECTION
     Route: 048
     Dates: start: 20181009, end: 20181017
  2. DALACIN C [Suspect]
     Active Substance: CLINDAMYCIN PHOSPHATE
     Indication: UPPER RESPIRATORY TRACT INFECTION
     Route: 048
     Dates: start: 20181009, end: 20181017
  3. FLUTICASONE. [Suspect]
     Active Substance: FLUTICASONE
     Indication: UPPER RESPIRATORY TRACT INFECTION
     Route: 045
     Dates: start: 20181009, end: 20181017
  4. DORITHRICIN [BENZALKONIUM CHLORIDE\BENZOCAINE\TYROTHRICIN] [Suspect]
     Active Substance: BENZALKONIUM CHLORIDE\BENZOCAINE\TYROTHRICIN
     Indication: UPPER RESPIRATORY TRACT INFECTION
     Route: 048
     Dates: start: 20181009, end: 20181017
  5. OTRIVIN [Suspect]
     Active Substance: XYLOMETAZOLINE
     Indication: UPPER RESPIRATORY TRACT INFECTION
     Route: 045
     Dates: start: 20181009, end: 20181017

REACTIONS (2)
  - Lip oedema [Recovered/Resolved]
  - Rash [Recovered/Resolved]

NARRATIVE: CASE EVENT DATE: 20181019
